FAERS Safety Report 8375687-1 (Version None)
Quarter: 2012Q2

REPORT INFORMATION
  Report Type: 
  Country: None (occurrence: None)
  Receive Date: 20120522
  Receipt Date: 20120518
  Transmission Date: 20120825
  Serious: No
  Sender: FDA-Public Use
  Company Number: US-PFIZER INC-2012121464

PATIENT
  Sex: Female
  Weight: 91 kg

DRUGS (8)
  1. LYRICA [Concomitant]
     Dosage: UNK
  2. PAROXETINE [Concomitant]
     Dosage: UNK
  3. RELPAX [Suspect]
     Indication: MIGRAINE
     Dosage: 40 MG, UNK
     Route: 048
  4. TOPIRAMATE [Concomitant]
     Dosage: UNK
  5. ATENOLOL [Concomitant]
     Dosage: UNK
  6. BUSPIRONE [Concomitant]
     Dosage: UNK
  7. LAMOTRIGINE [Concomitant]
     Dosage: UNK
  8. SIMVASTATIN [Concomitant]
     Dosage: UNK

REACTIONS (1)
  - MIGRAINE [None]
